FAERS Safety Report 9182806 (Version 1)
Quarter: 2013Q1

REPORT INFORMATION
  Report Type: Spontaneous
  Country: US (occurrence: US)
  Receive Date: 20130322
  Receipt Date: 20130322
  Transmission Date: 20140127
  Serious: Yes (Other)
  Sender: FDA-Public Use
  Company Number: US-BRISTOL-MYERS SQUIBB COMPANY-17172420

PATIENT
  Age: 51 Year
  Sex: Male

DRUGS (7)
  1. ERBITUX [Suspect]
     Indication: LARYNGEAL CANCER
     Dosage: 2 INFU: IN THE WEEK OF 26NOV2012 ?540 MG/WEEKLY *6?INTRODUCED AGAIN
     Dates: start: 20121113
  2. BENADRYL [Concomitant]
     Indication: PREMEDICATION
  3. PEPCID [Concomitant]
     Indication: PREMEDICATION
  4. STEROIDS [Concomitant]
     Indication: PREMEDICATION
  5. ALBUTEROL [Concomitant]
     Indication: PREMEDICATION
  6. ASPIRIN [Concomitant]
  7. DEXTRAN [Concomitant]

REACTIONS (1)
  - Anaphylactic reaction [Unknown]
